FAERS Safety Report 19773188 (Version 1)
Quarter: 2021Q3

REPORT INFORMATION
  Report Type: Spontaneous
  Country: PL (occurrence: PL)
  Receive Date: 20210901
  Receipt Date: 20210901
  Transmission Date: 20211014
  Serious: Yes (Life-Threatening, Hospitalization)
  Sender: FDA-Public Use
  Company Number: PL-MYLANLABS-2021M1057799

PATIENT
  Age: 73 Year
  Sex: Female
  Weight: 88 kg

DRUGS (1)
  1. SILDENAFIL. [Suspect]
     Active Substance: SILDENAFIL
     Indication: PRODUCT USED FOR UNKNOWN INDICATION
     Dosage: 20 MILLIGRAM, Q8H
     Route: 048
     Dates: start: 20200319, end: 20200319

REACTIONS (5)
  - Oxygen saturation decreased [Recovering/Resolving]
  - Pulmonary oedema [Recovering/Resolving]
  - Loss of consciousness [Recovering/Resolving]
  - Cardiac arrest [Recovering/Resolving]
  - Cyanosis [Recovering/Resolving]

NARRATIVE: CASE EVENT DATE: 20200319
